FAERS Safety Report 8265094-4 (Version None)
Quarter: 2012Q2

REPORT INFORMATION
  Report Type: 
  Country: None (occurrence: None)
  Receive Date: 20120406
  Receipt Date: 20120402
  Transmission Date: 20120825
  Serious: No
  Sender: FDA-Public Use
  Company Number: US-PFIZER INC-2012083313

PATIENT
  Sex: Female
  Weight: 66 kg

DRUGS (4)
  1. LYRICA [Suspect]
     Indication: FIBROMYALGIA
     Dosage: 25 MG, 2X/DAY
     Route: 048
     Dates: start: 20120315, end: 20120326
  2. ZOLOFT [Concomitant]
     Indication: DEPRESSION
     Dosage: UNK
  3. IBUPROFEN [Concomitant]
     Indication: PAIN
     Dosage: UNK
  4. LYRICA [Suspect]
     Indication: OSTEOPOROSIS
     Dosage: 50 MG, 3X/DAY
     Route: 048
     Dates: start: 20120326, end: 20120330

REACTIONS (9)
  - PHOBIA OF DRIVING [None]
  - DEPRESSION [None]
  - CONFUSIONAL STATE [None]
  - FATIGUE [None]
  - FEELING ABNORMAL [None]
  - VISION BLURRED [None]
  - DIZZINESS [None]
  - DISTURBANCE IN ATTENTION [None]
  - DRUG INEFFECTIVE [None]
